FAERS Safety Report 21709055 (Version 6)
Quarter: 2023Q4

REPORT INFORMATION
  Report Type: Report from Study
  Country: US (occurrence: US)
  Receive Date: 20221210
  Receipt Date: 20231227
  Transmission Date: 20240109
  Serious: Yes (Hospitalization, Other)
  Sender: FDA-Public Use
  Company Number: US-ABBVIE-4230976

PATIENT
  Sex: Male

DRUGS (5)
  1. VENCLEXTA [Suspect]
     Active Substance: VENETOCLAX
     Indication: Chronic lymphocytic leukaemia
     Dosage: FORM STRENGTH 100 MILLIGRAMS
     Route: 048
     Dates: start: 201906, end: 20190712
  2. VENCLEXTA [Suspect]
     Active Substance: VENETOCLAX
     Indication: Chronic lymphocytic leukaemia
     Dosage: FORM STRENGTH 100 MILLIGRAMS
     Route: 048
     Dates: start: 20190713
  3. VENCLEXTA [Suspect]
     Active Substance: VENETOCLAX
     Indication: Chronic lymphocytic leukaemia
     Dosage: FORM STRENGTH 100 MILLIGRAMS, LAST ADMIN DATE- JUN 2019
     Route: 048
     Dates: start: 20190606
  4. VENCLEXTA [Suspect]
     Active Substance: VENETOCLAX
     Indication: Chronic lymphocytic leukaemia
     Dosage: FORM STRENGTH 100 MILLIGRAMS, LAST ADMIN- JUN 2019
     Route: 048
     Dates: start: 20190607
  5. VENCLEXTA [Suspect]
     Active Substance: VENETOCLAX
     Indication: Chronic lymphocytic leukaemia
     Dosage: FORM STRENGTH 100 MILLIGRAMS
     Route: 048
     Dates: start: 201906, end: 201906

REACTIONS (5)
  - Sciatica [Unknown]
  - Localised infection [Unknown]
  - Road traffic accident [Recovering/Resolving]
  - Diarrhoea [Unknown]
  - Back injury [Recovering/Resolving]

NARRATIVE: CASE EVENT DATE: 20220101
